FAERS Safety Report 25556533 (Version 1)
Quarter: 2025Q3

REPORT INFORMATION
  Report Type: Spontaneous
  Country: US (occurrence: US)
  Receive Date: 20250715
  Receipt Date: 20250715
  Transmission Date: 20251020
  Serious: No
  Sender: NOVO NORDISK
  Company Number: US-NOVOPROD-1315317

PATIENT
  Age: 67 Year
  Sex: Male

DRUGS (1)
  1. OZEMPIC [Suspect]
     Active Substance: SEMAGLUTIDE
     Indication: Type 2 diabetes mellitus
     Dosage: 1 MG, QW
     Route: 058
     Dates: start: 20240812, end: 20240829

REACTIONS (4)
  - Tremor [Recovered/Resolved]
  - Injection site discharge [Recovered/Resolved]
  - Product dispensing error [Unknown]
  - Device malfunction [Unknown]

NARRATIVE: CASE EVENT DATE: 20240812
